FAERS Safety Report 5033125-0 (Version None)
Quarter: 2006Q2

REPORT INFORMATION
  Report Type: 
  Country: None (occurrence: None)
  Receive Date: 20060622
  Receipt Date: 20050623
  Transmission Date: 20061013
  Serious: Yes (Death, Life-Threatening, Hospitalization)
  Sender: FDA-Public Use
  Company Number: ESWYE771124JUN05

PATIENT
  Sex: Male

DRUGS (4)
  1. ENBREL [Suspect]
     Indication: RHEUMATOID ARTHRITIS
     Route: 058
     Dates: start: 20040902, end: 20041105
  2. OMEPRAZOLE [Concomitant]
     Route: 048
  3. RIFAMPICIN [Concomitant]
     Route: 048
  4. LOSARTAN [Concomitant]
     Route: 048

REACTIONS (2)
  - IMMUNOBLASTIC LYMPHOMA [None]
  - SEPSIS [None]
